FAERS Safety Report 6298161-5 (Version None)
Quarter: 2009Q3

REPORT INFORMATION
  Report Type: 
  Country: None (occurrence: None)
  Receive Date: 20090805
  Receipt Date: 20090727
  Transmission Date: 20100115
  Serious: Yes (Hospitalization, Other)
  Sender: FDA-Public Use
  Company Number: US-JNJFOC-20090706684

PATIENT
  Sex: Male
  Weight: 90.72 kg

DRUGS (17)
  1. REMICADE [Suspect]
     Indication: CROHN'S DISEASE
     Route: 042
  2. REMICADE [Suspect]
     Indication: COLITIS ULCERATIVE
     Dosage: DOSE: 5-10 MG/KG OR 900 MG
     Route: 042
  3. CIMZIA [Suspect]
     Indication: COLITIS ULCERATIVE
  4. CIMZIA [Suspect]
     Indication: CROHN'S DISEASE
     Dosage: FOR 6 MONTHS ANFTER INFLIXIMAB TREATMENT ENDED
  5. HUMIRA [Suspect]
     Indication: CROHN'S DISEASE
  6. HUMIRA [Suspect]
     Indication: COLITIS ULCERATIVE
     Dosage: RECEIVED 3 DOSES
  7. PREDNISONE [Concomitant]
     Indication: COLITIS ULCERATIVE
  8. ASACOL [Concomitant]
     Indication: COLITIS ULCERATIVE
  9. IMURAN [Concomitant]
  10. IMURAN [Concomitant]
     Indication: COLITIS ULCERATIVE
  11. VITAMIN D [Concomitant]
  12. FLAGYL [Concomitant]
  13. TUMS [Concomitant]
  14. MULTIPLE VITAMIN [Concomitant]
  15. TYLENOL (CAPLET) [Concomitant]
  16. SINGULAIR [Concomitant]
  17. ALLEGRA [Concomitant]

REACTIONS (3)
  - METASTATIC NEOPLASM [None]
  - RECTAL CANCER [None]
  - THROMBOSIS [None]
